FAERS Safety Report 11178669 (Version 2)
Quarter: 2015Q3

REPORT INFORMATION
  Report Type: Spontaneous
  Country: US (occurrence: US)
  Receive Date: 20150610
  Receipt Date: 20150706
  Transmission Date: 20151125
  Serious: Yes (Other)
  Sender: FDA-Public Use
  Company Number: US-BAYER-2015-324282

PATIENT
  Age: 19 Year
  Sex: Female
  Weight: 74 kg

DRUGS (1)
  1. ALEVE [Suspect]
     Active Substance: NAPROXEN SODIUM
     Indication: HEADACHE
     Dosage: 2 DF, PRN
     Route: 048
     Dates: start: 20150524, end: 20150524

REACTIONS (7)
  - Generalised tonic-clonic seizure [Recovered/Resolved]
  - Palpitations [Recovered/Resolved]
  - Muscle strain [Not Recovered/Not Resolved]
  - Memory impairment [Recovered/Resolved]
  - Hypersomnia [Recovered/Resolved]
  - Local swelling [Not Recovered/Not Resolved]
  - Drug ineffective [Unknown]

NARRATIVE: CASE EVENT DATE: 20150524
